FAERS Safety Report 8960346 (Version 1)
Quarter: 2012Q4

REPORT INFORMATION
  Report Type: 
  Country: US (occurrence: US)
  Receive Date: 20121212
  Receipt Date: 20121212
  Transmission Date: 20130627
  Serious: Yes (Hospitalization)
  Sender: FDA-Public Use
  Company Number: US-BAYER-2012-129201

PATIENT
  Age: 26 Year
  Sex: Female
  Weight: 79.38 kg

DRUGS (4)
  1. YAZ [Suspect]
  2. TRAMADOL/APAP [Concomitant]
     Dosage: 37.5/325
  3. OXYCODONE/APAP [Concomitant]
     Dosage: 7.5/325
  4. OXYCODONE [Concomitant]

REACTIONS (2)
  - Pulmonary embolism [None]
  - Deep vein thrombosis [None]
